FAERS Safety Report 8773044 (Version 1)
Quarter: 2012Q4

REPORT INFORMATION
  Report Type: 
  Country: EG (occurrence: EG)
  Receive Date: 20120907
  Receipt Date: 20120907
  Transmission Date: 20130627
  Serious: Yes (Death, Other)
  Sender: FDA-Public Use
  Company Number: EG-JNJFOC-20120902052

PATIENT
  Sex: Female

DRUGS (2)
  1. DOXORUBICIN HYDROCHLORIDE (CAELYX) [Suspect]
     Indication: PRODUCT USED FOR UNKNOWN INDICATION
     Route: 042
  2. UNKNOWN MEDICATION [Concomitant]
     Route: 065

REACTIONS (2)
  - Death [Fatal]
  - Exposure during pregnancy [Unknown]
